FAERS Safety Report 25836276 (Version 1)
Quarter: 2025Q3

REPORT INFORMATION
  Report Type: Other
  Country: US (occurrence: US)
  Receive Date: 20250923
  Receipt Date: 20250923
  Transmission Date: 20251021
  Serious: Yes (Hospitalization, Other)
  Sender: OMNIVIUM PHARMACEUTICALS LLC
  Company Number: US-Omnivium Pharmaceuticals LLC-2185112

PATIENT
  Age: 29 Year
  Sex: Male

DRUGS (3)
  1. NUMBRINO [Suspect]
     Active Substance: COCAINE HYDROCHLORIDE
     Indication: Product used for unknown indication
  2. CARVEDILOL [Suspect]
     Active Substance: CARVEDILOL
  3. METHAMPHETAMINE HYDROCHLORIDE [Suspect]
     Active Substance: METHAMPHETAMINE HYDROCHLORIDE

REACTIONS (9)
  - Myopericarditis [Unknown]
  - Overdose [Unknown]
  - Ejection fraction decreased [Unknown]
  - Left ventricular dysfunction [Unknown]
  - Troponin increased [Unknown]
  - Toxicity to various agents [Unknown]
  - Cardiomyopathy [Unknown]
  - Ventricular hypokinesia [Unknown]
  - Electrocardiogram ST segment elevation [Unknown]
